FAERS Safety Report 24590574 (Version 1)
Quarter: 2024Q4

REPORT INFORMATION
  Report Type: Spontaneous
  Country: AU (occurrence: AU)
  Receive Date: 20241107
  Receipt Date: 20241107
  Transmission Date: 20250115
  Serious: Yes (Hospitalization, Other)
  Sender: ELI LILLY AND COMPANY
  Company Number: AU-ELI_LILLY_AND_COMPANY-AU202410018321

PATIENT
  Age: 53 Year
  Sex: Female

DRUGS (24)
  1. DULOXETINE HYDROCHLORIDE [Suspect]
     Active Substance: DULOXETINE HYDROCHLORIDE
     Indication: Neuralgia
     Dosage: 30 MG, DAILY
     Route: 065
     Dates: end: 20230428
  2. LYRICA [Suspect]
     Active Substance: PREGABALIN
     Indication: Product used for unknown indication
     Dosage: UNK, UNKNOWN
     Route: 065
  3. METHYLPREDNISOLONE [Suspect]
     Active Substance: METHYLPREDNISOLONE
     Indication: Visual impairment
     Dosage: START: 23-SEP-2022
     Route: 065
     Dates: end: 20220925
  4. PREGABALIN [Suspect]
     Active Substance: PREGABALIN
     Indication: Product used for unknown indication
     Dosage: START: 31-MAY-2023
     Route: 065
  5. TOPIRAMATE [Suspect]
     Active Substance: TOPIRAMATE
     Indication: Pain
     Dosage: UNK, UNKNOWN
     Route: 065
  6. VUMERITY [Suspect]
     Active Substance: DIROXIMEL FUMARATE
     Indication: Relapsing-remitting multiple sclerosis
     Dosage: 924 MG, DAILY
     Route: 050
  7. VUMERITY [Suspect]
     Active Substance: DIROXIMEL FUMARATE
     Dosage: 924 MG, DAILY
     Route: 050
     Dates: end: 20221011
  8. VUMERITY [Suspect]
     Active Substance: DIROXIMEL FUMARATE
     Dosage: START:  01-AUG-2022
     Route: 050
  9. VUMERITY [Suspect]
     Active Substance: DIROXIMEL FUMARATE
     Dosage: 231 MG, DAILY
     Route: 050
     Dates: start: 20220801
  10. VUMERITY [Suspect]
     Active Substance: DIROXIMEL FUMARATE
     Dosage: 693 MG, DAILY
     Route: 050
     Dates: start: 20220801
  11. VUMERITY [Suspect]
     Active Substance: DIROXIMEL FUMARATE
     Dosage: 924 MG, DAILY
     Route: 050
     Dates: start: 20220801
  12. VUMERITY [Suspect]
     Active Substance: DIROXIMEL FUMARATE
     Dosage: 462 MG, DAILY
     Route: 050
     Dates: start: 20220808
  13. VUMERITY [Suspect]
     Active Substance: DIROXIMEL FUMARATE
     Dosage: 924 MG, DAILY
     Route: 050
     Dates: start: 2022
  14. VUMERITY [Suspect]
     Active Substance: DIROXIMEL FUMARATE
     Dosage: 924 MG, DAILY
     Route: 050
     Dates: start: 20220829
  15. VUMERITY [Suspect]
     Active Substance: DIROXIMEL FUMARATE
     Dosage: UNK UNK, UNKNOWN
     Route: 050
     Dates: start: 20220801, end: 20230720
  16. TAPENTADOL [Concomitant]
     Active Substance: TAPENTADOL
     Indication: Product used for unknown indication
     Dosage: UNK, UNKNOWN
     Route: 050
  17. TAPENTADOL [Concomitant]
     Active Substance: TAPENTADOL
     Dosage: UNK, UNKNOWN
     Route: 050
     Dates: start: 20230616
  18. CONJUGATED ESTROGENS [Concomitant]
     Active Substance: ESTROGENS, CONJUGATED
     Indication: Product used for unknown indication
     Dosage: UNK, WEEKLY (1/W)
     Route: 050
     Dates: start: 202209
  19. KETAMINE HYDROCHLORIDE [Concomitant]
     Active Substance: KETAMINE HYDROCHLORIDE
     Indication: Product used for unknown indication
     Dosage: UNK, UNKNOWN
     Route: 050
  20. LITHIUM [Concomitant]
     Active Substance: LITHIUM
     Indication: Product used for unknown indication
     Dosage: UNK, UNKNOWN
     Route: 050
     Dates: start: 2013
  21. NORTRIPTYLINE HYDROCHLORIDE [Concomitant]
     Active Substance: NORTRIPTYLINE HYDROCHLORIDE
     Indication: Product used for unknown indication
     Dosage: UNK, UNKNOWN
     Route: 050
     Dates: start: 20230427
  22. TEMAZEPAM [Concomitant]
     Active Substance: TEMAZEPAM
     Indication: Product used for unknown indication
     Dosage: UNK, UNKNOWN
     Route: 050
  23. EFFEXOR [Concomitant]
     Active Substance: VENLAFAXINE HYDROCHLORIDE
     Indication: Product used for unknown indication
     Dosage: UNK, UNKNOWN
     Route: 065
  24. EFFEXOR [Concomitant]
     Active Substance: VENLAFAXINE HYDROCHLORIDE
     Dosage: 112 MG
     Route: 050
     Dates: start: 20230803

REACTIONS (42)
  - Intestinal obstruction [Recovered/Resolved]
  - Multiple sclerosis [Not Recovered/Not Resolved]
  - Rectal prolapse [Unknown]
  - Neurogenic bowel [Unknown]
  - Herpes zoster [Recovered/Resolved with Sequelae]
  - Mental impairment [Not Recovered/Not Resolved]
  - Nervous system disorder [Unknown]
  - Abdominal distension [Not Recovered/Not Resolved]
  - Affective disorder [Not Recovered/Not Resolved]
  - Anal hypoaesthesia [Not Recovered/Not Resolved]
  - Anal incontinence [Not Recovered/Not Resolved]
  - Eye movement disorder [Unknown]
  - Faecaloma [Recovered/Resolved]
  - Faeces soft [Recovered/Resolved]
  - Gastrointestinal disorder [Recovered/Resolved]
  - Haemorrhoids [Recovered/Resolved]
  - Hypotension [Not Recovered/Not Resolved]
  - Impulsive behaviour [Not Recovered/Not Resolved]
  - Muscle atrophy [Unknown]
  - Muscular weakness [Unknown]
  - Pain [Recovered/Resolved]
  - Post-traumatic stress disorder [Not Recovered/Not Resolved]
  - Procedural pain [Not Recovered/Not Resolved]
  - Stress [Unknown]
  - Urinary incontinence [Recovered/Resolved]
  - Urinary tract infection [Unknown]
  - Anxiety [Unknown]
  - Asthenia [Unknown]
  - Chills [Recovered/Resolved]
  - Constipation [Recovered/Resolved]
  - Diarrhoea [Recovered/Resolved]
  - Disturbance in attention [Not Recovered/Not Resolved]
  - Dizziness [Recovered/Resolved]
  - Insomnia [Not Recovered/Not Resolved]
  - Malaise [Unknown]
  - Nausea [Not Recovered/Not Resolved]
  - Tinnitus [Not Recovered/Not Resolved]
  - Vision blurred [Not Recovered/Not Resolved]
  - Vomiting [Recovered/Resolved]
  - Weight decreased [Unknown]
  - Fatigue [Not Recovered/Not Resolved]
  - Somnolence [Not Recovered/Not Resolved]

NARRATIVE: CASE EVENT DATE: 20220101
